FAERS Safety Report 9197160 (Version 2)
Quarter: 2013Q2

REPORT INFORMATION
  Report Type: Report from Study
  Country: JP (occurrence: JP)
  Receive Date: 20130328
  Receipt Date: 20130430
  Transmission Date: 20140414
  Serious: Yes (Other)
  Sender: FDA-Public Use
  Company Number: JP-ROCHE-1206406

PATIENT
  Sex: Male
  Weight: 68 kg

DRUGS (10)
  1. BEVACIZUMAB [Suspect]
     Indication: AGE-RELATED MACULAR DEGENERATION
     Route: 031
  2. RANIBIZUMAB [Suspect]
     Indication: AGE-RELATED MACULAR DEGENERATION
     Route: 050
     Dates: start: 20090511
  3. RANIBIZUMAB [Suspect]
     Route: 050
     Dates: start: 20090601
  4. RANIBIZUMAB [Suspect]
     Route: 050
     Dates: start: 20090706
  5. VISUDYNE [Concomitant]
     Route: 065
     Dates: start: 200812
  6. VIGAMOX [Concomitant]
     Route: 065
     Dates: start: 200905
  7. VIGAMOX [Concomitant]
     Route: 065
     Dates: start: 200906
  8. VIGAMOX [Concomitant]
     Route: 065
     Dates: start: 200907
  9. FLOMOX [Concomitant]
     Route: 065
     Dates: start: 20090511
  10. FLOMOX [Concomitant]
     Route: 065
     Dates: start: 20090707

REACTIONS (2)
  - Retinal haemorrhage [Unknown]
  - Inappropriate schedule of drug administration [Unknown]
